FAERS Safety Report 9852294 (Version 1)
Quarter: 2014Q1

REPORT INFORMATION
  Report Type: Spontaneous
  Country: US (occurrence: None)
  Receive Date: 20140127
  Receipt Date: 20140127
  Transmission Date: 20141002
  Serious: Yes (Other)
  Sender: FDA-Public Use
  Company Number: NL01PV14.35107

PATIENT
  Age: 44 Year
  Sex: Male

DRUGS (17)
  1. TAMSULOSIN (UNKNOWN) [Suspect]
     Indication: PRODUCT USED FOR UNKNOWN INDICATION
  2. DOXAZOSIN [Suspect]
     Indication: PRODUCT USED FOR UNKNOWN INDICATION
  3. QUETIAPINE FUMARATE [Suspect]
     Indication: AFFECTIVE DISORDER
     Route: 048
  4. BOCEPREVIR (BOCEPREVIR) [Suspect]
     Indication: HEPATITIS C
  5. TESTOSTERONE [Suspect]
     Indication: HYPOGONADISM
     Dosage: 200 MG, EVERY OTHER WEEK, INTRAMUSCULAR
     Route: 030
  6. EFAVIRENZ/EMTRICITABIN/TENOFOVIR DISOPROX FUM (EFAVIRENZ, EMTRICITABINE, TENOFOVIR DISOPROXIL FUMARATE)? [Concomitant]
  7. PEGINTERFERON ALFA-2B (PEGINTERFERON ALFA-2B) [Concomitant]
  8. RIBAVIRIN (RIBABIRIN)? [Concomitant]
  9. ONDANSETRON (ONDANSETRON) [Concomitant]
  10. ESOMEPRAZOLE (ESOMEPRAZOLE) [Concomitant]
  11. LITHIUM (LITHIUM) [Concomitant]
  12. LOSARTAN (LOSARTAN) [Concomitant]
  13. NAPROXEN (NAPROXEN) [Concomitant]
  14. OXYCODONE HYDROCHLORIDE W/PARACETAMOL (OXYCODONE HYDROCHLORIDE, PARACETAMOL)? [Concomitant]
  15. LOPERAMIDE (LOPERAMIDE) [Concomitant]
  16. CODEINE W/GUAFENESIN /07994901/ (CODEINE, GUAIFENESIN) [Concomitant]
  17. CYCLOBENZAPRINE (CYCLOBENZAPRINE) [Concomitant]

REACTIONS (2)
  - Drug interaction [None]
  - Priapism [None]
